FAERS Safety Report 9170583 (Version 1)
Quarter: 2013Q1

REPORT INFORMATION
  Report Type: Spontaneous
  Country: US (occurrence: None)
  Receive Date: 20130308
  Receipt Date: 20130308
  Transmission Date: 20140127
  Serious: Yes (Life-Threatening, Hospitalization, Other)
  Sender: FDA-Public Use
  Company Number: 001487451A

PATIENT
  Age: 64 Year
  Sex: Female

DRUGS (2)
  1. MEANINGFUL BEAUTY CINDY CRAWFORD SKIN BRIGHTENING DECOLLETE AND NECK TREATMENT SPF 15 [Suspect]
     Dosage: TWICE DAILY DERMAL
     Dates: start: 20130102, end: 20130116
  2. MEANINGFUL BEAUTY CINDY CRAWFORD MAINTENANCE 1 DAILY MOISTURE SPF 8 [Suspect]
     Dosage: TWICE DAILY DERMAL
     Dates: start: 20130102, end: 20130116

REACTIONS (8)
  - Rash [None]
  - Rash [None]
  - Rash [None]
  - Lip swelling [None]
  - Swelling face [None]
  - Local swelling [None]
  - Pharyngeal oedema [None]
  - Swollen tongue [None]
